FAERS Safety Report 4756467-2 (Version None)
Quarter: 2005Q3

REPORT INFORMATION
  Report Type: 
  Country: None (occurrence: None)
  Receive Date: 20050830
  Receipt Date: 20050706
  Transmission Date: 20060218
  Serious: No
  Sender: FDA-Public Use
  Company Number: US-GLAXOSMITHKLINE-A0565171A

PATIENT
  Age: 55 Year
  Sex: Female

DRUGS (8)
  1. WELLBUTRIN XL [Suspect]
     Indication: DEPRESSION
     Dosage: 300MG PER DAY
     Route: 048
  2. KEPPRA [Concomitant]
  3. PROZAC [Concomitant]
  4. PROVIGIL [Concomitant]
  5. ZANTAC [Concomitant]
  6. RISPERDAL [Concomitant]
  7. KLONOPIN [Concomitant]
  8. ATIVAN [Concomitant]

REACTIONS (6)
  - ABDOMINAL PAIN [None]
  - ANXIETY [None]
  - CONFUSIONAL STATE [None]
  - FATIGUE [None]
  - NAUSEA [None]
  - SOMNOLENCE [None]
